FAERS Safety Report 14026351 (Version 1)
Quarter: 2017Q3

REPORT INFORMATION
  Report Type: Spontaneous
  Country: US (occurrence: US)
  Receive Date: 20170929
  Receipt Date: 20170929
  Transmission Date: 20171128
  Serious: Yes (Life-Threatening)
  Sender: FDA-Public Use
  Company Number: US-CELGENEUS-USA-20170908053

PATIENT
  Sex: Male
  Weight: 74.91 kg

DRUGS (4)
  1. VELCADE [Concomitant]
     Active Substance: BORTEZOMIB
     Indication: PULMONARY EMBOLISM
     Dosage: 3.5 MILLIGRAM
     Route: 065
  2. DEXAMETHASONE. [Concomitant]
     Active Substance: DEXAMETHASONE
     Indication: PULMONARY EMBOLISM
     Dosage: 4 MILLIGRAM
     Route: 065
  3. REVLIMID [Suspect]
     Active Substance: LENALIDOMIDE
     Indication: PLASMA CELL MYELOMA
     Dosage: 25 MILLIGRAM
     Route: 048
     Dates: start: 201705
  4. REVLIMID [Suspect]
     Active Substance: LENALIDOMIDE
     Dosage: 18.75 MILLIGRAM
     Route: 048
     Dates: start: 20170727

REACTIONS (3)
  - Anxiety [Unknown]
  - Neuropathy peripheral [Unknown]
  - Tooth infection [Unknown]
